FAERS Safety Report 26208475 (Version 1)
Quarter: 2025Q4

REPORT INFORMATION
  Report Type: Spontaneous
  Country: JP (occurrence: JP)
  Receive Date: 20251229
  Receipt Date: 20251229
  Transmission Date: 20260117
  Serious: Yes (Life-Threatening, Hospitalization, Other)
  Sender: ELI LILLY AND COMPANY
  Company Number: JP-ELI_LILLY_AND_COMPANY-JP202512028377

PATIENT
  Age: 74 Year
  Sex: Female
  Weight: 38.7 kg

DRUGS (6)
  1. VERZENIO [Suspect]
     Active Substance: ABEMACICLIB
     Indication: Breast cancer
     Dosage: 100 MG, BID
     Route: 048
     Dates: start: 20231221, end: 20250925
  2. LETROZOLE [Concomitant]
     Active Substance: LETROZOLE
  3. POTASSIUM ASPARTATE [Concomitant]
     Active Substance: POTASSIUM ASPARTATE
  4. CALCIUM ASPARTATE [Concomitant]
     Active Substance: CALCIUM ASPARTATE
  5. DESLORATADINE [Concomitant]
     Active Substance: DESLORATADINE
  6. ZOLEDRONIC ACID [Concomitant]
     Active Substance: ZOLEDRONIC ACID

REACTIONS (9)
  - Pleural effusion [Recovered/Resolved]
  - Pneumocystis jirovecii pneumonia [Recovered/Resolved]
  - Lung opacity [Recovered/Resolved]
  - Pneumonia cytomegaloviral [Recovered/Resolved]
  - Interstitial lung disease [Recovered/Resolved]
  - Pancytopenia [Recovered/Resolved]
  - Blood beta-D-glucan positive [Recovering/Resolving]
  - Fungal infection [Recovering/Resolving]
  - Pulmonary fibrosis [Unknown]

NARRATIVE: CASE EVENT DATE: 20250925
